FAERS Safety Report 13123049 (Version 2)
Quarter: 2017Q4

REPORT INFORMATION
  Report Type: Spontaneous
  Country: TR (occurrence: TR)
  Receive Date: 20170117
  Receipt Date: 20171218
  Transmission Date: 20180320
  Serious: Yes (Hospitalization, Other)
  Sender: FDA-Public Use
  Company Number: TR-GILEAD-2017-0253049

PATIENT
  Age: 66 Year
  Sex: Female

DRUGS (2)
  1. HARVONI [Suspect]
     Active Substance: LEDIPASVIR\SOFOSBUVIR
     Indication: HEPATITIS C
     Route: 065
  2. RIBAVIRIN. [Concomitant]
     Active Substance: RIBAVIRIN
     Dosage: 400 MG, UNK

REACTIONS (6)
  - Anaemia [Recovered/Resolved]
  - Blood bilirubin increased [Recovered/Resolved]
  - Asthenia [Recovered/Resolved]
  - Ascites [Recovered/Resolved]
  - Blood albumin abnormal [Recovered/Resolved]
  - General physical health deterioration [Recovered/Resolved]
